FAERS Safety Report 6298600-X (Version None)
Quarter: 2009Q3

REPORT INFORMATION
  Report Type: 
  Country: None (occurrence: None)
  Receive Date: 20090805
  Receipt Date: 20090729
  Transmission Date: 20100115
  Serious: Yes (Life-Threatening)
  Sender: FDA-Public Use
  Company Number: CA-AMGEN-QUU357983

PATIENT
  Sex: Male
  Weight: 75 kg

DRUGS (6)
  1. ENBREL [Suspect]
     Indication: DRUG USE FOR UNKNOWN INDICATION
     Route: 058
  2. ARAVA [Concomitant]
  3. ARTHROTEC [Concomitant]
  4. METHOTREXATE [Concomitant]
  5. PLAQUENIL [Concomitant]
  6. SYNTHROID [Concomitant]

REACTIONS (11)
  - ABDOMINAL PAIN [None]
  - ARTHRITIS BACTERIAL [None]
  - LIVEDO RETICULARIS [None]
  - OSTEOMYELITIS [None]
  - RENAL FAILURE ACUTE [None]
  - SEPSIS [None]
  - SEPTIC SHOCK [None]
  - SKIN NECROSIS [None]
  - SKIN ULCER [None]
  - STAPHYLOCOCCAL INFECTION [None]
  - TACHYCARDIA [None]
